FAERS Safety Report 6666999-8 (Version None)
Quarter: 2010Q1

REPORT INFORMATION
  Report Type: 
  Country: None (occurrence: None)
  Receive Date: 20100331
  Receipt Date: 20100317
  Transmission Date: 20100710
  Serious: Yes (Other)
  Sender: FDA-Public Use
  Company Number: 2010SP016251

PATIENT
  Age: 48 Year
  Sex: Male
  Weight: 93 kg

DRUGS (3)
  1. REMERGIL SOLTAB (MIRTAZAPINE) [Suspect]
     Indication: MAJOR DEPRESSION
     Dosage: 30 MG; QD; PO
     Route: 048
     Dates: start: 20100217, end: 20100226
  2. TREVILOR RETARD [Concomitant]
  3. PANTOPRAZOLE SODIUM [Concomitant]

REACTIONS (3)
  - ALANINE AMINOTRANSFERASE INCREASED [None]
  - ASPARTATE AMINOTRANSFERASE INCREASED [None]
  - BLOOD CREATINE PHOSPHOKINASE INCREASED [None]
